FAERS Safety Report 9893426 (Version 2)
Quarter: 2014Q1

REPORT INFORMATION
  Report Type: Report from Study
  Country: US (occurrence: US)
  Receive Date: 20140213
  Receipt Date: 20140213
  Transmission Date: 20141002
  Serious: Yes (Other)
  Sender: FDA-Public Use
  Company Number: US-BAYER-2014-011845

PATIENT
  Age: 73 Year
  Sex: Male

DRUGS (1)
  1. STIVARGA [Suspect]
     Indication: COLORECTAL CANCER
     Dosage: 4X40 MG
     Route: 048
     Dates: start: 20140115

REACTIONS (6)
  - Drug-induced liver injury [None]
  - Renal disorder [None]
  - Diarrhoea [None]
  - Perianal erythema [None]
  - Dysphonia [None]
  - Anorectal discomfort [None]
